FAERS Safety Report 25400866 (Version 1)
Quarter: 2025Q2

REPORT INFORMATION
  Report Type: Spontaneous
  Country: IN (occurrence: IN)
  Receive Date: 20250605
  Receipt Date: 20250605
  Transmission Date: 20250717
  Serious: Yes (Other)
  Sender: AZURITY PHARMACEUTICALS
  Company Number: IN-AZURITY PHARMACEUTICALS, INC.-AZR202505-001528

PATIENT
  Age: 68 Year
  Sex: Male

DRUGS (2)
  1. BACLOFEN [Suspect]
     Active Substance: BACLOFEN
     Indication: Hiccups
     Route: 065
     Dates: start: 202502
  2. MEROPENEM [Concomitant]
     Active Substance: MEROPENEM
     Indication: Lung consolidation
     Route: 065

REACTIONS (4)
  - Toxic encephalopathy [Recovered/Resolved]
  - Rebound psychosis [Recovered/Resolved]
  - Toxicity to various agents [Recovered/Resolved]
  - Product use in unapproved indication [Unknown]

NARRATIVE: CASE EVENT DATE: 20250201
